FAERS Safety Report 7971907-3 (Version None)
Quarter: 2011Q4

REPORT INFORMATION
  Report Type: 
  Country: None (occurrence: None)
  Receive Date: 20111212
  Receipt Date: 20111130
  Transmission Date: 20120403
  Serious: Yes (Disabling)
  Sender: FDA-Public Use
  Company Number: PHHY2011FR105524

PATIENT
  Age: 84 Year
  Sex: Female

DRUGS (1)
  1. GLEEVEC [Suspect]
     Indication: CHRONIC LYMPHOCYTIC LEUKAEMIA
     Dosage: UNK UKN, UNK

REACTIONS (5)
  - CYANOSIS [None]
  - GAIT DISTURBANCE [None]
  - SKIN ATROPHY [None]
  - ERYTHEMA [None]
  - PAIN IN EXTREMITY [None]
